FAERS Safety Report 6058384-7 (Version None)
Quarter: 2009Q1

REPORT INFORMATION
  Report Type: 
  Country: None (occurrence: None)
  Receive Date: 20090127
  Receipt Date: 20090120
  Transmission Date: 20090719
  Serious: Yes (Other)
  Sender: FDA-Public Use
  Company Number: 2008SP023349

PATIENT
  Age: 31 Year
  Sex: Male

DRUGS (2)
  1. NOXAFIL [Suspect]
     Indication: INFECTIOUS DISEASE CARRIER
     Dosage: 40 MG; TID; PO
     Route: 048
     Dates: start: 20081107, end: 20081109
  2. GLEEVEC [Suspect]
     Indication: CHROMOSOME ANALYSIS ABNORMAL
     Dosage: 100 MG; PO
     Route: 048
     Dates: start: 20081107

REACTIONS (2)
  - ATRIAL FLUTTER [None]
  - ELECTROCARDIOGRAM QT PROLONGED [None]
